FAERS Safety Report 5148101-7 (Version None)
Quarter: 2006Q4

REPORT INFORMATION
  Report Type: 
  Country: None (occurrence: None)
  Receive Date: 20061106
  Receipt Date: 20061024
  Transmission Date: 20070319
  Serious: Yes (Death, Other)
  Sender: FDA-Public Use
  Company Number: 2006125281

PATIENT
  Age: 72 Year
  Sex: Female

DRUGS (9)
  1. ZIPRASIDONE HCL [Suspect]
     Indication: DEPRESSION
     Dosage: 40 MG (1 IN 1 D), ORAL
     Route: 048
     Dates: start: 20051221, end: 20051223
  2. INHIBACE PLUS (CILAZAPRIL, HYDROCHLOROTHIAZIDE) [Suspect]
     Dosage: 0.5 MG (0.5 MG, 1 IN 1 D), ORAL
     Route: 048
     Dates: start: 20051126, end: 20051223
  3. CIPRALEX (ESCITALOPRAM) [Concomitant]
  4. TRITTICO (TRAZODONE HYDOCHLORIDE) [Concomitant]
  5. THYPREX (LEVOTHYOXINE SODIUM) [Concomitant]
  6. LORAZEPAM [Concomitant]
  7. SEROQUEL [Concomitant]
  8. LASIX [Suspect]
     Dosage: 20 MG (20 MG)
  9. LOVENOX [Suspect]
     Dosage: 80 MG (1 IN 1 D), SUBCUTANEOUS
     Route: 058
     Dates: start: 20051118, end: 20051212

REACTIONS (15)
  - CIRCULATORY COLLAPSE [None]
  - COR PULMONALE [None]
  - CYANOSIS [None]
  - DEHYDRATION [None]
  - DEPRESSED LEVEL OF CONSCIOUSNESS [None]
  - DYSPNOEA [None]
  - EMPHYSEMA [None]
  - HEPATIC STEATOSIS [None]
  - OVARIAN CYST [None]
  - PULMONARY EMBOLISM [None]
  - TACHYCARDIA [None]
  - TREATMENT NONCOMPLIANCE [None]
  - UTERINE LEIOMYOMA [None]
  - VARICOSE VEIN [None]
  - WEIGHT DECREASED [None]
